FAERS Safety Report 4724346-2 (Version None)
Quarter: 2005Q3

REPORT INFORMATION
  Report Type: 
  Country: None (occurrence: None)
  Receive Date: 20050722
  Receipt Date: 20050711
  Transmission Date: 20060218
  Serious: Yes (Other)
  Sender: FDA-Public Use
  Company Number: 2005098797

PATIENT
  Sex: Female

DRUGS (6)
  1. XALATAN [Suspect]
     Indication: ILL-DEFINED DISORDER
     Dosage: TOPICAL
     Route: 061
     Dates: start: 19970101, end: 20050101
  2. PLAVIX [Concomitant]
  3. BRINZOLAMIDE (BRINZOLAMIDE) [Concomitant]
  4. ACIDE  RISEDRONIQUE SEL MONOSODIQUE (RISEDRONIC ACID) [Concomitant]
  5. PERINDOPRIL TERT-BUTYL (INDAPAMIDE HEMIHYDRATE, PERINDOPRIL ERBUMINE) [Concomitant]
  6. DILTIAZEM CHLORHYDRATE (DILTIAZEM HYDROCHLORIDE) [Concomitant]

REACTIONS (2)
  - CEREBROVASCULAR ACCIDENT [None]
  - PLATELET COUNT INCREASED [None]
